FAERS Safety Report 5147188-5 (Version None)
Quarter: 2006Q4

REPORT INFORMATION
  Report Type: 
  Country: None (occurrence: None)
  Receive Date: 20061103
  Receipt Date: 20061018
  Transmission Date: 20070319
  Serious: Yes (Hospitalization)
  Sender: FDA-Public Use
  Company Number: 217071

PATIENT
  Age: 65 Year
  Sex: Male
  Weight: 74 kg

DRUGS (8)
  1. BEVACIZUMAB (BEVACIZUMAB) PWDR + SOLVENT,INFUSION SOLN, 100MG [Suspect]
     Indication: NON-SMALL CELL LUNG CANCER
     Dosage: 15 MG/KG, Q3W, INTRAVENOUS
     Route: 042
     Dates: start: 20050622, end: 20050711
  2. CISPLATIN [Suspect]
     Indication: NON-SMALL CELL LUNG CANCER
     Dosage: 80 MG/M2, Q3W, INTRAVENOUS
     Route: 042
     Dates: start: 20050622
  3. GEMCITABINE [Suspect]
     Indication: NON-SMALL CELL LUNG CANCER
     Dosage: 1250 MG/M2, INTRAVENOUS
     Route: 042
     Dates: start: 20050622
  4. DOCUSATE SODIUM [Concomitant]
  5. PROCHLORPERAZINE [Concomitant]
  6. SENOKOT [Concomitant]
  7. ZANTAC [Concomitant]
  8. POTASSIUM CHLORIDE [Concomitant]

REACTIONS (12)
  - ASTHENIA [None]
  - COLITIS [None]
  - COUGH [None]
  - HYPOKALAEMIA [None]
  - ILEUS [None]
  - LEUKOCYTOSIS [None]
  - NAUSEA [None]
  - PNEUMOTHORAX [None]
  - SPUTUM DISCOLOURED [None]
  - TUMOUR LYSIS SYNDROME [None]
  - TUMOUR NECROSIS [None]
  - VOMITING [None]
